FAERS Safety Report 15842107 (Version 3)
Quarter: 2019Q1

REPORT INFORMATION
  Report Type: Spontaneous
  Country: US (occurrence: US)
  Receive Date: 20190118
  Receipt Date: 20190311
  Transmission Date: 20190417
  Serious: Yes (Life-Threatening, Other)
  Sender: FDA-Public Use
  Company Number: US-TORRENT-00003302

PATIENT
  Age: 22 Year
  Sex: Male

DRUGS (1)
  1. RISPERIDONE. [Suspect]
     Active Substance: RISPERIDONE
     Indication: SCHIZOAFFECTIVE DISORDER
     Dosage: UNKNOWN

REACTIONS (4)
  - Electrocardiogram T wave abnormal [Recovering/Resolving]
  - Electrocardiogram ST-T segment abnormal [Recovering/Resolving]
  - Pulmonary embolism [Recovered/Resolved]
  - Wellens^ syndrome [Recovering/Resolving]
